FAERS Safety Report 7646495-1 (Version None)
Quarter: 2011Q3

REPORT INFORMATION
  Report Type: 
  Country: None (occurrence: None)
  Receive Date: 20110801
  Receipt Date: 20110725
  Transmission Date: 20111222
  Serious: Yes (Hospitalization)
  Sender: FDA-Public Use
  Company Number: US-JNJFOC-20110710845

PATIENT
  Age: 47 Year
  Sex: Male
  Weight: 92 kg

DRUGS (6)
  1. SYNTHROID [Concomitant]
     Route: 048
  2. WELLBUTRIN SR [Concomitant]
     Route: 048
  3. TRICOR [Concomitant]
     Route: 048
  4. INVEGA [Suspect]
     Indication: SCHIZOPHRENIA
     Route: 048
     Dates: start: 20100101
  5. ZOCOR [Concomitant]
     Route: 048
  6. LORATADINE [Concomitant]
     Route: 048

REACTIONS (1)
  - BLOOD GLUCOSE INCREASED [None]
